FAERS Safety Report 13664783 (Version 1)
Quarter: 2017Q2

REPORT INFORMATION
  Report Type: Spontaneous
  Country: US (occurrence: US)
  Receive Date: 20170619
  Receipt Date: 20170619
  Transmission Date: 20170830
  Serious: No
  Sender: FDA-Public Use
  Company Number: US-009507513-1705USA012793

PATIENT
  Age: 19 Year
  Sex: Female
  Weight: 88.44 kg

DRUGS (1)
  1. NEXPLANON [Suspect]
     Active Substance: ETONOGESTREL
     Indication: CONTRACEPTION
     Dosage: EVERY 3 YEARS
     Route: 059

REACTIONS (4)
  - Mood swings [Unknown]
  - Loss of libido [Unknown]
  - Muscle spasms [Unknown]
  - Vaginal discharge [Unknown]

NARRATIVE: CASE EVENT DATE: 201604
